FAERS Safety Report 26111621 (Version 2)
Quarter: 2025Q4

REPORT INFORMATION
  Report Type: Spontaneous
  Country: US (occurrence: US)
  Receive Date: 20251202
  Receipt Date: 20251205
  Transmission Date: 20260117
  Serious: Yes (Hospitalization, Other)
  Sender: RANBAXY
  Company Number: US-SUN PHARMACEUTICAL INDUSTRIES LTD-2025R1-539040

PATIENT
  Age: 71 Year
  Sex: Male

DRUGS (3)
  1. RISPERIDONE [Suspect]
     Active Substance: RISPERIDONE
     Indication: Schizophrenia
     Dosage: 3 MILLIGRAM, BID
     Route: 065
  2. RISPERIDONE [Suspect]
     Active Substance: RISPERIDONE
     Dosage: 3 MILLIGRAM, QD
     Route: 065
  3. TRAZODONE [Suspect]
     Active Substance: TRAZODONE HYDROCHLORIDE
     Indication: Schizophrenia
     Dosage: 50 MILLIGRAM
     Route: 065

REACTIONS (2)
  - Rhabdomyolysis [Unknown]
  - Influenza [Unknown]
